FAERS Safety Report 6498775-3 (Version None)
Quarter: 2009Q4

REPORT INFORMATION
  Report Type: 
  Country: None (occurrence: None)
  Receive Date: 20091127
  Receipt Date: 20081110
  Transmission Date: 20100525
  Serious: Yes (Hospitalization)
  Sender: FDA-Public Use
  Company Number: 280154

PATIENT
  Age: 51 Year
  Sex: Female
  Weight: 54.4 kg

DRUGS (5)
  1. NOVOLOG [Suspect]
     Indication: TYPE 1 DIABETES MELLITUS
     Dosage: 15.73 IU, QD, SUBCUTAN.-PUMP
     Route: 058
     Dates: start: 20080827, end: 20080924
  2. PAXIL [Concomitant]
  3. KLONOPIN [Concomitant]
  4. AMITRIPTYLINE HYDROCHLORIDE [Concomitant]
  5. DIOVAN [Concomitant]

REACTIONS (3)
  - BLOOD GLUCOSE INCREASED [None]
  - DIABETIC KETOACIDOSIS [None]
  - DRUG INEFFECTIVE [None]
